FAERS Safety Report 4544503-8 (Version None)
Quarter: 2004Q4

REPORT INFORMATION
  Report Type: 
  Country: None (occurrence: None)
  Receive Date: 20041230
  Receipt Date: 20041215
  Transmission Date: 20050328
  Serious: Yes (Other)
  Sender: FDA-Public Use
  Company Number: US-2004-036774

PATIENT
  Age: 48 Year
  Sex: Female
  Weight: 67.1 kg

DRUGS (8)
  1. CLIMARA [Suspect]
     Indication: HORMONE REPLACEMENT THERAPY
     Dosage: TRANSDERMAL
     Route: 062
     Dates: start: 20020101, end: 20020101
  2. ESTRADIOL [Suspect]
     Indication: HORMONE REPLACEMENT THERAPY
     Dates: start: 20000101, end: 20010101
  3. VIVELLE [Suspect]
     Indication: HORMONE REPLACEMENT THERAPY
     Dates: start: 20000101, end: 20000101
  4. ESTRADERM [Suspect]
     Indication: HORMONE REPLACEMENT THERAPY
     Dates: start: 19900101, end: 19990101
  5. PROVERA [Suspect]
     Indication: HORMONE REPLACEMENT THERAPY
     Dates: start: 19890101, end: 19990101
  6. PREMARIN TABLET (ESROGENS CONJUGATED) [Suspect]
     Indication: HORMONE REPLACEMENT THERAPY
     Dates: start: 19890101, end: 19900101
  7. BUTALBITAL [Concomitant]
  8. ACIPHEX [Concomitant]

REACTIONS (2)
  - BREAST CANCER FEMALE [None]
  - EMOTIONAL DISTRESS [None]
